FAERS Safety Report 14341445 (Version 1)
Quarter: 2018Q1

REPORT INFORMATION
  Report Type: Report from Study
  Country: US (occurrence: US)
  Receive Date: 20180102
  Receipt Date: 20180102
  Transmission Date: 20180509
  Serious: Yes (Death)
  Sender: FDA-Public Use
  Company Number: US-CIPLA LTD.-2017US29494

PATIENT

DRUGS (8)
  1. THIOTEPA. [Suspect]
     Active Substance: THIOTEPA
     Indication: HAEMATOPOIETIC STEM CELL MOBILISATION
     Dosage: 5-10 MG/KG ON DAY -7
     Route: 042
  2. VALACYCLOVIR [Suspect]
     Active Substance: VALACYCLOVIR HYDROCHLORIDE
     Indication: ANTIVIRAL PROPHYLAXIS
     Dosage: 500 MG, DAILY
     Route: 048
  3. TACROLIMUS. [Suspect]
     Active Substance: TACROLIMUS
     Indication: SUPPORTIVE CARE
     Dosage: 0.015 MG/KG, DAILY AS A CONTINUOUS INFUSION STARTING DAY -2
     Route: 042
  4. FLUDARABINE [Suspect]
     Active Substance: FLUDARABINE PHOSPHATE
     Indication: HAEMATOPOIETIC STEM CELL MOBILISATION
     Dosage: 40 MG/M2, UNK, ON DAYS -6 TO -3
     Route: 042
  5. VALGANCICLOVIR. [Suspect]
     Active Substance: VALGANCICLOVIR
     Indication: ANTIVIRAL PROPHYLAXIS
     Dosage: 900 MG, BID, FROM ADMISSION TO DAY -2
     Route: 048
  6. MYCOPHENOLATE MOFETIL. [Suspect]
     Active Substance: MYCOPHENOLATE MOFETIL
     Indication: SUPPORTIVE CARE
     Dosage: 1 G, TID, STARTING DAY -2 TO DAY +100
     Route: 048
  7. MELPHALAN. [Suspect]
     Active Substance: MELPHALAN
     Indication: HAEMATOPOIETIC STEM CELL MOBILISATION
     Dosage: 140 OR 100 MG/M2 ON DAY -8
     Route: 042
  8. CYCLOPHOSPHAMIDE. [Suspect]
     Active Substance: CYCLOPHOSPHAMIDE
     Indication: SUPPORTIVE CARE
     Dosage: 50 MG/KG, UNK, ON DAYS 3 AND 4
     Route: 042

REACTIONS (1)
  - Death [Fatal]
